FAERS Safety Report 25684524 (Version 1)
Quarter: 2025Q3

REPORT INFORMATION
  Report Type: Spontaneous
  Country: US (occurrence: US)
  Receive Date: 20250815
  Receipt Date: 20250815
  Transmission Date: 20251020
  Serious: No
  Sender: VERRICA PHARMACEUTICALS
  Company Number: US-VERRICA PHARMACEUTICALS INC.-2025VER000022

PATIENT

DRUGS (1)
  1. YCANTH [Suspect]
     Active Substance: CANTHARIDIN
     Indication: Molluscum contagiosum
     Route: 061
     Dates: start: 20250519

REACTIONS (6)
  - Blood blister [Recovering/Resolving]
  - Gait disturbance [Recovered/Resolved]
  - Blister [Recovering/Resolving]
  - Pain of skin [Recovering/Resolving]
  - Increased dose administered [Unknown]
  - Product delivery mechanism issue [Unknown]

NARRATIVE: CASE EVENT DATE: 20250519
